FAERS Safety Report 15889545 (Version 1)
Quarter: 2019Q1

REPORT INFORMATION
  Report Type: Spontaneous
  Country: FR (occurrence: FR)
  Receive Date: 20190130
  Receipt Date: 20190130
  Transmission Date: 20190417
  Serious: Yes (Hospitalization, Other)
  Sender: FDA-Public Use
  Company Number: FR-PFIZER INC-2019034955

PATIENT
  Age: 54 Year
  Sex: Female
  Weight: 89 kg

DRUGS (5)
  1. DOXORUBICIN HCL [Suspect]
     Active Substance: DOXORUBICIN HYDROCHLORIDE
     Indication: EWING^S SARCOMA METASTATIC
     Dosage: 20 MG/M2, 1X/DAY
     Route: 041
     Dates: start: 20181214, end: 20181216
  2. HOLOXAN [Suspect]
     Active Substance: IFOSFAMIDE
     Indication: EWING^S SARCOMA METASTATIC
     Dosage: 2500 MG/M2, 1X/DAY
     Route: 041
     Dates: start: 20181214, end: 20181216
  3. CHLORPROMAZINE. [Suspect]
     Active Substance: CHLORPROMAZINE
     Dosage: 25 MG, 1X/DAY
     Route: 042
     Dates: start: 20181212, end: 20181217
  4. PREGABALIN. [Suspect]
     Active Substance: PREGABALIN
     Indication: NEURALGIA
     Dosage: 50 MG, 1X/DAY
     Route: 048
     Dates: start: 20181212, end: 20181217
  5. MIDAZOLAM [Suspect]
     Active Substance: MIDAZOLAM HYDROCHLORIDE
     Indication: SEDATION
     Dosage: UNK
     Route: 041
     Dates: start: 20181203, end: 20181217

REACTIONS (2)
  - Encephalopathy [Recovered/Resolved]
  - Product use issue [Unknown]

NARRATIVE: CASE EVENT DATE: 20181212
